FAERS Safety Report 7330707-8 (Version None)
Quarter: 2011Q1

REPORT INFORMATION
  Report Type: 
  Country: None (occurrence: None)
  Receive Date: 20110304
  Receipt Date: 20110223
  Transmission Date: 20110831
  Serious: Yes (Hospitalization, Other)
  Sender: FDA-Public Use
  Company Number: US-BAYER-2011-017877

PATIENT
  Sex: Female

DRUGS (1)
  1. MS PATHWAYS PATIENT SUPPORT PROGRAM BETAFERON [Suspect]
     Dosage: 8 MIU, QOD
     Route: 058
     Dates: start: 20100106

REACTIONS (3)
  - VERTIGO [None]
  - EAR PAIN [None]
  - EYE PAIN [None]
